FAERS Safety Report 9553567 (Version 1)
Quarter: 2013Q3

REPORT INFORMATION
  Report Type: Spontaneous
  Country: US (occurrence: None)
  Receive Date: 20130815
  Receipt Date: 20130815
  Transmission Date: 20140515
  Serious: No
  Sender: FDA-Public Use
  Company Number: ADR-2013-00584

PATIENT
  Sex: Female

DRUGS (1)
  1. BACLOFEN INTRATHECAL [Suspect]
     Indication: MUSCLE SPASTICITY

REACTIONS (4)
  - Discomfort [None]
  - Pain [None]
  - Fatigue [None]
  - Muscle tightness [None]
